FAERS Safety Report 4978910-6 (Version None)
Quarter: 2006Q2

REPORT INFORMATION
  Report Type: 
  Country: None (occurrence: None)
  Receive Date: 20060417
  Receipt Date: 20060320
  Transmission Date: 20061013
  Serious: Yes (Death)
  Sender: FDA-Public Use
  Company Number: 2006035461

PATIENT
  Sex: Female

DRUGS (3)
  1. AMLODIPINE [Suspect]
     Indication: ILL-DEFINED DISORDER
  2. DOXAZOSIN (DOXAZOSIN) [Suspect]
     Indication: ILL-DEFINED DISORDER
  3. ATORVASTATIN CALCIUM [Suspect]
     Indication: ILL-DEFINED DISORDER
     Dosage: ORAL
     Route: 048

REACTIONS (2)
  - ANAPHYLACTIC REACTION [None]
  - CARDIAC FAILURE [None]
